FAERS Safety Report 12791105 (Version 1)
Quarter: 2016Q3

REPORT INFORMATION
  Report Type: Spontaneous
  Country: US (occurrence: US)
  Receive Date: 20160929
  Receipt Date: 20160929
  Transmission Date: 20161109
  Serious: No
  Sender: FDA-Public Use
  Company Number: US-PFIZER INC-2016452441

PATIENT
  Age: 62 Year
  Sex: Female

DRUGS (1)
  1. IBRANCE [Suspect]
     Active Substance: PALBOCICLIB
     Indication: BREAST CANCER FEMALE
     Dosage: 125 MG, CYCLIC (TAKE 1 BY MOUTH DAILY FOR 21 DAYS FOLLOWED BY 7 DAYS OFF REPEAT EVERY 28 DAYS)
     Route: 048
     Dates: start: 201609

REACTIONS (1)
  - Diarrhoea [Unknown]
